FAERS Safety Report 4384863-4 (Version None)
Quarter: 2004Q2

REPORT INFORMATION
  Report Type: 
  Country: None (occurrence: None)
  Receive Date: 20040623
  Receipt Date: 20040616
  Transmission Date: 20050107
  Serious: Yes (Other)
  Sender: FDA-Public Use
  Company Number: 2004040462

PATIENT
  Age: 48 Year
  Sex: Female
  Weight: 58.9676 kg

DRUGS (6)
  1. BENADRYL [Suspect]
     Indication: URTICARIA
     Dosage: 1 TABLESPOONFUL ONCE, ORAL
     Route: 048
     Dates: start: 20040616, end: 20040616
  2. PROPRANOLOL HCL [Concomitant]
  3. LORAZEPAM [Concomitant]
  4. NORTRIPTYLINE HYDROCHLORIDE [Concomitant]
  5. CONJUGATED ESTROGENS [Concomitant]
  6. SUMATRIPTAN SUCCINATE [Concomitant]

REACTIONS (5)
  - ACCIDENTAL EXPOSURE [None]
  - MEDICATION ERROR [None]
  - PHARYNGEAL HYPOAESTHESIA [None]
  - STOMACH DISCOMFORT [None]
  - URTICARIA [None]
